FAERS Safety Report 7002249-0 (Version None)
Quarter: 2010Q3

REPORT INFORMATION
  Report Type: 
  Country: None (occurrence: None)
  Receive Date: 20100920
  Receipt Date: 20091002
  Transmission Date: 20110219
  Serious: No
  Sender: FDA-Public Use
  Company Number: US-ASTRAZENECA-2009SE17869

PATIENT
  Age: 50 Year
  Sex: Male

DRUGS (3)
  1. SEROQUEL [Suspect]
     Route: 048
  2. PAXIL [Concomitant]
  3. TRILEPTAL [Concomitant]

REACTIONS (2)
  - SOMNAMBULISM [None]
  - TRANSIENT GLOBAL AMNESIA [None]
